FAERS Safety Report 18007266 (Version 3)
Quarter: 2020Q3

REPORT INFORMATION
  Report Type: Spontaneous
  Country: GB (occurrence: GB)
  Receive Date: 20200710
  Receipt Date: 20200805
  Transmission Date: 20201103
  Serious: Yes (Hospitalization)
  Sender: FDA-Public Use
  Company Number: GB-VERTEX PHARMACEUTICALS-2020-014279

PATIENT
  Age: 42 Year
  Sex: Male

DRUGS (2)
  1. SYMKEVI [Suspect]
     Active Substance: IVACAFTOR\TEZACAFTOR
     Indication: CYSTIC FIBROSIS
     Dosage: 100 MG TEZACAFTOR/150 MG IVACAFTOR, MORNING DAILY
     Route: 048
     Dates: start: 2020
  2. KALYDECO [Suspect]
     Active Substance: IVACAFTOR
     Indication: CYSTIC FIBROSIS
     Dosage: 150 MG IVACAFTOR, EVENING
     Route: 048
     Dates: start: 2020

REACTIONS (4)
  - Pulmonary function test decreased [Not Recovered/Not Resolved]
  - Malaise [Recovering/Resolving]
  - Dyspnoea [Not Recovered/Not Resolved]
  - Infection [Recovering/Resolving]

NARRATIVE: CASE EVENT DATE: 2020
